FAERS Safety Report 11904804 (Version 1)
Quarter: 2016Q1

REPORT INFORMATION
  Report Type: Spontaneous
  Country: US (occurrence: US)
  Receive Date: 20160108
  Receipt Date: 20160108
  Transmission Date: 20160526
  Serious: No
  Sender: FDA-Public Use
  Company Number: US-ROCHE-1634263

PATIENT
  Sex: Female
  Weight: 7.42 kg

DRUGS (1)
  1. ACTIVASE [Suspect]
     Active Substance: ALTEPLASE
     Indication: PRODUCT USED FOR UNKNOWN INDICATION
     Route: 064
     Dates: start: 20150817, end: 20150817

REACTIONS (2)
  - Vaginal haemorrhage [Unknown]
  - Foetal exposure during pregnancy [Unknown]
